FAERS Safety Report 14667841 (Version 1)
Quarter: 2018Q1

REPORT INFORMATION
  Report Type: Spontaneous
  Country: US (occurrence: US)
  Receive Date: 20180320
  Receipt Date: 20180320
  Transmission Date: 20180509
  Serious: No
  Sender: FDA-Public Use
  Company Number: None

PATIENT
  Age: 43 Year
  Sex: Female

DRUGS (2)
  1. HUMIRA [Suspect]
     Active Substance: ADALIMUMAB
     Indication: PSORIATIC ARTHROPATHY
     Dosage: 40MG 80MG DAY 1, THEN 40 MG ON DAY 8, THEN ONE PEN SUBCUTANEOUS?
     Route: 058
     Dates: start: 20180307, end: 20180313
  2. HUMIRA [Suspect]
     Active Substance: ADALIMUMAB
     Indication: RHEUMATOID ARTHRITIS
     Dosage: 40MG 80MG DAY 1, THEN 40 MG ON DAY 8, THEN ONE PEN SUBCUTANEOUS?
     Route: 058
     Dates: start: 20180307, end: 20180313

REACTIONS (2)
  - Wound [None]
  - Psoriasis [None]

NARRATIVE: CASE EVENT DATE: 20180307
